FAERS Safety Report 19720499 (Version 2)
Quarter: 2021Q4

REPORT INFORMATION
  Report Type: Spontaneous
  Country: None (occurrence: US)
  Receive Date: 20210818
  Receipt Date: 20211122
  Transmission Date: 20220303
  Serious: No
  Sender: FDA-Public Use
  Company Number: US-AKCEA THERAPEUTICS, INC.-2021IS001499

PATIENT
  Age: 80 Year
  Sex: Female

DRUGS (2)
  1. TEGSEDI [Suspect]
     Active Substance: INOTERSEN SODIUM
     Indication: Hereditary neuropathic amyloidosis
     Route: 058
     Dates: end: 20210617
  2. DEVICE [Suspect]
     Active Substance: DEVICE

REACTIONS (7)
  - Urine protein/creatinine ratio increased [Unknown]
  - Protein urine present [Unknown]
  - Nitrite urine present [Unknown]
  - Bacterial test positive [Unknown]
  - Urine abnormality [Unknown]
  - Confusional state [Unknown]
  - Refusal of treatment by patient [Unknown]
